FAERS Safety Report 24066322 (Version 1)
Quarter: 2024Q3

REPORT INFORMATION
  Report Type: Spontaneous
  Country: GB (occurrence: GB)
  Receive Date: 20240709
  Receipt Date: 20240709
  Transmission Date: 20241016
  Serious: Yes (Death)
  Sender: TEVA
  Company Number: GB-MHRA-WEBRADR-202406271112225870-ZRYJB

PATIENT
  Age: 76 Year
  Sex: Male
  Weight: 89 kg

DRUGS (1)
  1. CARBOPLATIN [Suspect]
     Active Substance: CARBOPLATIN
     Indication: Bladder cancer
     Route: 065
     Dates: start: 20231205, end: 20231205

REACTIONS (1)
  - Nausea [Fatal]

NARRATIVE: CASE EVENT DATE: 20231205
